FAERS Safety Report 5836069-7 (Version None)
Quarter: 2008Q3

REPORT INFORMATION
  Report Type: 
  Country: None (occurrence: None)
  Receive Date: 20080806
  Receipt Date: 20080728
  Transmission Date: 20090109
  Serious: Yes (Hospitalization, Disabling)
  Sender: FDA-Public Use
  Company Number: US-MERCK-0805USA00402

PATIENT
  Age: 80 Year
  Sex: Female
  Weight: 45 kg

DRUGS (4)
  1. FOSAMAX [Suspect]
     Indication: OSTEOPOROSIS
     Route: 048
     Dates: start: 19970320, end: 20011101
  2. FOSAMAX [Suspect]
     Route: 048
     Dates: start: 20011101, end: 20061017
  3. ATENOLOL [Concomitant]
     Indication: HYPERTENSION
     Route: 065
  4. POLYSACCHARIDE IRON COMPLEX [Concomitant]
     Indication: ANAEMIA
     Route: 065

REACTIONS (29)
  - ADVERSE DRUG REACTION [None]
  - ANOREXIA [None]
  - ANXIETY [None]
  - ARTHRALGIA [None]
  - BACK PAIN [None]
  - CHILLS [None]
  - DECREASED APPETITE [None]
  - DENTAL CARIES [None]
  - DEPRESSION [None]
  - DIARRHOEA [None]
  - GASTROINTESTINAL INFECTION [None]
  - GINGIVAL DISORDER [None]
  - GINGIVAL INFECTION [None]
  - HEARING IMPAIRED [None]
  - IMPAIRED HEALING [None]
  - INJURY [None]
  - INSOMNIA [None]
  - JAW DISORDER [None]
  - LABYRINTHITIS [None]
  - NO THERAPEUTIC RESPONSE [None]
  - ORAL FUNGAL INFECTION [None]
  - ORAL INFECTION [None]
  - ORAL PAIN [None]
  - OSTEOMYELITIS [None]
  - OSTEONECROSIS [None]
  - SKIN ULCER [None]
  - WEIGHT DECREASED [None]
  - WOUND INFECTION STAPHYLOCOCCAL [None]
  - WRIST FRACTURE [None]
